FAERS Safety Report 4673745-6 (Version None)
Quarter: 2005Q2

REPORT INFORMATION
  Report Type: 
  Country: None (occurrence: None)
  Receive Date: 20050524
  Receipt Date: 20050505
  Transmission Date: 20051028
  Serious: Yes (Other)
  Sender: FDA-Public Use
  Company Number: 2005076661

PATIENT
  Age: 44 Year
  Sex: Male

DRUGS (3)
  1. EPANUTIN            (PHENYTOIN SODIUIM) [Suspect]
     Indication: BRAIN NEOPLASM
     Dosage: (100 MG), ORAL
     Route: 048
  2. MEDROL [Concomitant]
  3. LOSEC          (OMEPRAZOLE0 [Concomitant]

REACTIONS (2)
  - DYSPNOEA [None]
  - TREMOR [None]
